FAERS Safety Report 6112830-9 (Version None)
Quarter: 2009Q1

REPORT INFORMATION
  Report Type: 
  Country: None (occurrence: None)
  Receive Date: 20090312
  Receipt Date: 20090227
  Transmission Date: 20090719
  Serious: Yes (Hospitalization)
  Sender: FDA-Public Use
  Company Number: JP-PFIZER INC-2009163413

PATIENT

DRUGS (21)
  1. ZYVOX [Suspect]
     Indication: STAPHYLOCOCCAL INFECTION
     Dosage: 600 MG, 2X/DAY
     Route: 042
     Dates: start: 20090109, end: 20090119
  2. PRODIF [Suspect]
     Indication: SYSTEMIC CANDIDA
     Dosage: 504.6 MG, 1X/DAY
     Route: 042
     Dates: start: 20090102, end: 20090103
  3. PRODIF [Suspect]
     Dosage: 252.3 MG, 1X/DAY
     Route: 042
     Dates: start: 20090104, end: 20090105
  4. TAKEPRON [Suspect]
     Indication: REFLUX OESOPHAGITIS
     Dosage: 30 MG, 1X/DAY
     Route: 048
     Dates: start: 20081128
  5. BLOPRESS [Suspect]
     Indication: HYPERTENSION
     Dosage: 8 MG, 1X/DAY
     Dates: start: 20081129
  6. KLARICID [Suspect]
     Indication: RESPIRATORY TRACT INFECTION
     Dosage: 200 MG, 2X/DAY
     Dates: start: 20081219
  7. LOXONIN [Suspect]
     Dosage: 60 MG, 2X/DAY
     Route: 048
     Dates: start: 20081224, end: 20081228
  8. FOIPAN [Suspect]
     Dosage: UNK
     Route: 048
     Dates: start: 20081224, end: 20081228
  9. VOLTAREN [Suspect]
     Dosage: UNK
     Dates: start: 20081230, end: 20090105
  10. CIPROXAN [Suspect]
     Dosage: UNK
     Route: 042
     Dates: start: 20081206, end: 20081228
  11. LASIX [Suspect]
     Dosage: UNK
     Route: 042
     Dates: start: 20081227, end: 20090119
  12. VANCOMYCIN [Suspect]
     Dosage: UNK
     Route: 042
     Dates: start: 20081228, end: 20090109
  13. MICAFUNGIN SODIUM [Suspect]
     Dosage: UNK
     Route: 042
     Dates: start: 20090106, end: 20090110
  14. DIGOSIN [Concomitant]
     Dosage: UNK
     Route: 048
     Dates: start: 20081127
  15. URSO 250 [Concomitant]
     Dosage: UNK
     Route: 048
     Dates: start: 20081129
  16. ULCERMIN [Concomitant]
     Dosage: UNK
     Route: 048
     Dates: start: 20081201
  17. VANCOMYCIN [Concomitant]
     Dosage: UNK
     Route: 048
     Dates: start: 20090104, end: 20090117
  18. CRAVIT [Concomitant]
     Dosage: UNK
     Dates: start: 20081216
  19. AZUNOL [Concomitant]
     Dosage: UNK
     Dates: start: 20090104
  20. ACTOSIN [Concomitant]
     Dosage: UNK
     Dates: start: 20090107
  21. SODIUM CHLORIDE [Concomitant]
     Dosage: UNK
     Route: 042
     Dates: start: 20081228, end: 20090109

REACTIONS (1)
  - ANAEMIA [None]
